FAERS Safety Report 5893649-0 (Version None)
Quarter: 2008Q3

REPORT INFORMATION
  Report Type: 
  Country: None (occurrence: None)
  Receive Date: 20080923
  Receipt Date: 20071001
  Transmission Date: 20090109
  Serious: No
  Sender: FDA-Public Use
  Company Number: US-ASTRAZENECA-2007UW22932

PATIENT
  Age: 61 Year
  Sex: Female
  Weight: 56.3 kg

DRUGS (4)
  1. SEROQUEL [Suspect]
     Indication: ANXIETY
     Dosage: 1/20TH OF A TABLET
     Route: 048
     Dates: start: 20070101, end: 20070201
  2. SEROQUEL [Suspect]
     Dosage: 1/10TH OF A TABLET
     Route: 048
     Dates: start: 20070201, end: 20070301
  3. SEROQUEL [Suspect]
     Dosage: 1/4TH OF A TABLET
     Route: 048
     Dates: start: 20070301, end: 20070401
  4. SEROQUEL [Suspect]
     Dosage: 3/4TH OF A TABLET
     Route: 048
     Dates: start: 20070401, end: 20070501

REACTIONS (10)
  - ALOPECIA [None]
  - AMNESIA [None]
  - C-REACTIVE PROTEIN INCREASED [None]
  - CONSTIPATION [None]
  - GASTROOESOPHAGEAL REFLUX DISEASE [None]
  - HYPERHIDROSIS [None]
  - LIVER FUNCTION TEST ABNORMAL [None]
  - MUSCLE TWITCHING [None]
  - OESOPHAGEAL DISCOMFORT [None]
  - POLLAKIURIA [None]
